FAERS Safety Report 7037690-3 (Version None)
Quarter: 2010Q4

REPORT INFORMATION
  Report Type: 
  Country: None (occurrence: None)
  Receive Date: 20101011
  Receipt Date: 20101001
  Transmission Date: 20110411
  Serious: Yes (Hospitalization, Other)
  Sender: FDA-Public Use
  Company Number: CA-ABBOTT-10P-028-0675752-00

PATIENT
  Sex: Male
  Weight: 86 kg

DRUGS (1)
  1. LUPRON DEPOT [Suspect]
     Indication: PROSTATE CANCER
     Dates: start: 20080827, end: 20100715

REACTIONS (3)
  - APHASIA [None]
  - CONDITION AGGRAVATED [None]
  - PARALYSIS [None]
